FAERS Safety Report 10488702 (Version 1)
Quarter: 2014Q4

REPORT INFORMATION
  Report Type: Spontaneous
  Country: GB (occurrence: GB)
  Receive Date: 20141002
  Receipt Date: 20141002
  Transmission Date: 20150528
  Serious: Yes (Hospitalization, Other)
  Sender: FDA-Public Use
  Company Number: GB-INCYTE CORPORATION-2014IN002795

PATIENT

DRUGS (6)
  1. JAKAFI [Suspect]
     Active Substance: RUXOLITINIB
     Dosage: 10 MG, BID
     Route: 065
     Dates: start: 201407
  2. JAKAFI [Suspect]
     Active Substance: RUXOLITINIB
     Dosage: 5 MG, BID
     Route: 065
  3. JAKAFI [Suspect]
     Active Substance: RUXOLITINIB
     Dosage: 5 MG, BID
     Route: 065
     Dates: start: 201301
  4. JAKAFI [Suspect]
     Active Substance: RUXOLITINIB
     Dosage: 5 MG, BID
     Route: 065
     Dates: start: 201404
  5. CYTARABINE. [Concomitant]
     Active Substance: CYTARABINE
     Dosage: UNK UKN, UNK
  6. JAKAFI [Suspect]
     Active Substance: RUXOLITINIB
     Dosage: 10 MG, BID
     Route: 065
     Dates: start: 201306

REACTIONS (6)
  - Abdominal discomfort [Recovering/Resolving]
  - Neutropenic sepsis [Recovered/Resolved]
  - White blood cell count increased [Recovering/Resolving]
  - Cytopenia [Recovering/Resolving]
  - Abdominal pain [Recovering/Resolving]
  - Blast cell count increased [Recovering/Resolving]

NARRATIVE: CASE EVENT DATE: 201404
